FAERS Safety Report 24161147 (Version 1)
Quarter: 2024Q3

REPORT INFORMATION
  Report Type: Spontaneous
  Country: US (occurrence: None)
  Receive Date: 20240801
  Receipt Date: 20240801
  Transmission Date: 20241016
  Serious: Yes (Other)
  Sender: ENCUBE ETHICALS
  Company Number: US-Encube-000843

PATIENT
  Age: 72 Year
  Sex: Male

DRUGS (1)
  1. TESTOSTERONE [Suspect]
     Active Substance: TESTOSTERONE
     Indication: Primary hypogonadism
     Dosage: 250 MG/ML INJECTION, EVERY 7-10 DAYS
     Dates: end: 2023

REACTIONS (5)
  - Prostate cancer recurrent [Not Recovered/Not Resolved]
  - Breast cancer male [Not Recovered/Not Resolved]
  - Product use issue [Unknown]
  - Prescription drug used without a prescription [Unknown]
  - Contraindicated product administered [Unknown]

NARRATIVE: CASE EVENT DATE: 20230101
